FAERS Safety Report 5873350-X (Version None)
Quarter: 2008Q3

REPORT INFORMATION
  Report Type: 
  Country: None (occurrence: None)
  Receive Date: 20080829
  Receipt Date: 20060828
  Transmission Date: 20090109
  Serious: Yes (Other)
  Sender: FDA-Public Use
  Company Number: 2006-00798FE

PATIENT
  Age: 31 Year
  Sex: Female

DRUGS (2)
  1. MENOPUR [Suspect]
     Indication: THERAPEUTIC PROCEDURE
     Dosage: 150 IU SC
     Route: 058
     Dates: start: 20060526, end: 20060605
  2. SUPRECUR (SUPRECUR) (BUSERELIN ACETATE) [Suspect]
     Indication: IN VITRO FERTILISATION
     Dosage: IN
     Dates: start: 20060507, end: 20060605

REACTIONS (4)
  - ASCITES [None]
  - LIVER DISORDER [None]
  - OVARIAN HYPERSTIMULATION SYNDROME [None]
  - WEIGHT INCREASED [None]
